FAERS Safety Report 7982641-8 (Version None)
Quarter: 2011Q4

REPORT INFORMATION
  Report Type: 
  Country: None (occurrence: None)
  Receive Date: 20111215
  Receipt Date: 20111212
  Transmission Date: 20120403
  Serious: Yes (Other)
  Sender: FDA-Public Use
  Company Number: US-ROCHE-1021558

PATIENT
  Sex: Female

DRUGS (2)
  1. CAMPTOSAR [Concomitant]
  2. HERCEPTIN [Suspect]
     Indication: BREAST CANCER METASTATIC
     Route: 042
     Dates: start: 19990201

REACTIONS (2)
  - DRUG RESISTANCE [None]
  - BREAST CANCER [None]
